FAERS Safety Report 10349919 (Version 1)
Quarter: 2014Q3

REPORT INFORMATION
  Report Type: Spontaneous
  Country: US (occurrence: US)
  Receive Date: 20140730
  Receipt Date: 20140730
  Transmission Date: 20150326
  Serious: Yes (Other)
  Sender: FDA-Public Use
  Company Number: US-CELGENEUS-163-21880-14073590

PATIENT
  Sex: Female
  Weight: 63.56 kg

DRUGS (1)
  1. REVLIMID [Suspect]
     Active Substance: LENALIDOMIDE
     Indication: MYELODYSPLASTIC SYNDROME
     Dosage: 2.5 MILLIGRAM
     Route: 048
     Dates: start: 201404

REACTIONS (4)
  - Dehydration [Unknown]
  - Dyspnoea [Unknown]
  - Cardiac flutter [Unknown]
  - Depression [Unknown]

NARRATIVE: CASE EVENT DATE: 2014
